FAERS Safety Report 5021696-X (Version None)
Quarter: 2006Q2

REPORT INFORMATION
  Report Type: 
  Country: None (occurrence: None)
  Receive Date: 20060605
  Receipt Date: 20060524
  Transmission Date: 20061013
  Serious: Yes (Other)
  Sender: FDA-Public Use
  Company Number: 2006068033

PATIENT
  Age: 63 Year
  Sex: Male
  Weight: 83.4619 kg

DRUGS (9)
  1. NORVASC [Suspect]
     Indication: HYPERTENSION
     Dosage: 10 MG (10 MG, QD), ORAL
     Route: 048
  2. LIPITOR [Suspect]
     Indication: BLOOD CHOLESTEROL INCREASED
     Dosage: 40 MG (40 MG, QD), ORAL
     Route: 048
  3. CADUET [Suspect]
     Indication: BLOOD CHOLESTEROL INCREASED
     Dosage: DAILY INTERVAL: EVERY DAY)
     Dates: start: 20060401, end: 20060501
  4. ZETIA [Concomitant]
  5. ACTOS [Concomitant]
  6. BENICAR [Concomitant]
  7. ACEON [Concomitant]
  8. SYNTHROID [Concomitant]
  9. FLOMAX ^CSL^ (TAMSULOSIN HYDROCHLORIDE) [Concomitant]

REACTIONS (6)
  - BLOOD CHOLESTEROL INCREASED [None]
  - HEART RATE DECREASED [None]
  - HIGH DENSITY LIPOPROTEIN DECREASED [None]
  - LOW DENSITY LIPOPROTEIN INCREASED [None]
  - THERAPEUTIC RESPONSE DECREASED [None]
  - THERAPY NON-RESPONDER [None]
